FAERS Safety Report 6186058-0 (Version None)
Quarter: 2009Q2

REPORT INFORMATION
  Report Type: 
  Country: None (occurrence: None)
  Receive Date: 20090507
  Receipt Date: 20090507
  Transmission Date: 20091009
  Serious: Yes (Hospitalization)
  Sender: FDA-Public Use
  Company Number: None

PATIENT
  Age: 27 Year
  Sex: Female
  Weight: 69 kg

DRUGS (5)
  1. BACTRIM DS [Suspect]
     Indication: RESPIRATORY DISORDER
     Dosage: ORAL 7-8 DAYS PRIOR TO ADMISSION
     Route: 048
  2. SINGULAIR [Concomitant]
  3. ZYRTEC [Concomitant]
  4. OXYBUTYIN [Concomitant]
  5. SEASONIQUW [Concomitant]

REACTIONS (17)
  - ASTHENIA [None]
  - BURNING SENSATION [None]
  - CANDIDIASIS [None]
  - CONDITION AGGRAVATED [None]
  - DYSPNOEA EXERTIONAL [None]
  - FATIGUE [None]
  - HEADACHE [None]
  - MOUTH ULCERATION [None]
  - NECK PAIN [None]
  - PAIN [None]
  - PHARYNGEAL ERYTHEMA [None]
  - PHOTOPHOBIA [None]
  - PRURITUS [None]
  - PYREXIA [None]
  - RASH [None]
  - TONGUE DISORDER [None]
  - VOMITING [None]
